FAERS Safety Report 18301161 (Version 1)
Quarter: 2020Q3

REPORT INFORMATION
  Report Type: Report from Study
  Country: None (occurrence: US)
  Receive Date: 20200923
  Receipt Date: 20200923
  Transmission Date: 20201103
  Serious: Yes (Other)
  Sender: FDA-Public Use
  Company Number: US-ABBVIE-20K-163-3575525-00

PATIENT
  Sex: Male

DRUGS (1)
  1. VENCLEXTA [Suspect]
     Active Substance: VENETOCLAX
     Indication: ACUTE MYELOID LEUKAEMIA
     Route: 048

REACTIONS (9)
  - Blood glucose increased [Unknown]
  - Blood bilirubin abnormal [Unknown]
  - Blood sodium decreased [Unknown]
  - White blood cell count decreased [Unknown]
  - Carbon dioxide decreased [Unknown]
  - Blood creatinine abnormal [Unknown]
  - Packed red blood cell transfusion [Unknown]
  - Platelet count decreased [Unknown]
  - Constipation [Unknown]
